FAERS Safety Report 4673862-0 (Version None)
Quarter: 2005Q2

REPORT INFORMATION
  Report Type: 
  Country: None (occurrence: None)
  Receive Date: 20050524
  Receipt Date: 20050513
  Transmission Date: 20051028
  Serious: Yes (Hospitalization, Other)
  Sender: FDA-Public Use
  Company Number: EWC050443479

PATIENT
  Age: 48 Year
  Sex: Female
  Weight: 64 kg

DRUGS (4)
  1. HUMATROPE [Suspect]
     Indication: GROWTH HORMONE DEFICIENCY
     Dosage: 2 IU/1 DAY
     Route: 015
     Dates: start: 20030303, end: 20050109
  2. ASTRIX (ACETYLSALICYLIC ACID) [Concomitant]
  3. METOPROLOL TARTRATE [Concomitant]
  4. AMLODIPINE [Concomitant]

REACTIONS (5)
  - EYE MOVEMENT DISORDER [None]
  - HEMIPARESIS [None]
  - METASTASES TO CENTRAL NERVOUS SYSTEM [None]
  - NEOPLASM PROGRESSION [None]
  - PITUITARY TUMOUR RECURRENT [None]
